FAERS Safety Report 6252086-X (Version None)
Quarter: 2009Q2

REPORT INFORMATION
  Report Type: 
  Country: None (occurrence: None)
  Receive Date: 20090630
  Receipt Date: 20070221
  Transmission Date: 20091009
  Serious: Yes (Hospitalization)
  Sender: FDA-Public Use
  Company Number: US-ROCHE-638881

PATIENT
  Sex: Male

DRUGS (18)
  1. ENFUVIRTIDE [Suspect]
     Route: 065
     Dates: start: 20040519, end: 20040721
  2. ENFUVIRTIDE [Suspect]
     Route: 065
     Dates: start: 20061228, end: 20071105
  3. NORVIR [Concomitant]
     Dates: start: 20011112, end: 20080814
  4. VIREAD [Concomitant]
     Dates: start: 20011112, end: 20041027
  5. COMBIVIR [Concomitant]
     Dates: start: 20040412, end: 20060628
  6. LEXIVA [Concomitant]
     Dates: start: 20040519, end: 20060228
  7. PREZISTA [Concomitant]
     Dates: start: 20060228, end: 20080814
  8. TRIZIVIR [Concomitant]
     Dates: start: 20060228, end: 20080814
  9. EPZICOM [Concomitant]
     Dates: start: 20071105, end: 20080814
  10. ISENTRESS [Concomitant]
     Dates: start: 20071105, end: 20080814
  11. ZITHROMAX [Concomitant]
     Dates: start: 20010917, end: 20050411
  12. ZITHROMAX [Concomitant]
     Dates: start: 20051114, end: 20051121
  13. ZITHROMAX [Concomitant]
     Dates: start: 20070319, end: 20070321
  14. DAPSONE [Concomitant]
     Dates: start: 20040401, end: 20080814
  15. ROCEPHIN [Concomitant]
     Dosage: DOSE: 1 GRAM ONCE.
     Dates: start: 20051114, end: 20051114
  16. BACTRIM DS [Concomitant]
     Dates: start: 20061218, end: 20061228
  17. CLINDAMYCIN [Concomitant]
     Dates: start: 20061218, end: 20061228
  18. LEVAQUIN [Concomitant]
     Dates: start: 20070201, end: 20071101

REACTIONS (1)
  - VIRAL INFECTION [None]
